FAERS Safety Report 8211579-6 (Version None)
Quarter: 2012Q1

REPORT INFORMATION
  Report Type: 
  Country: None (occurrence: None)
  Receive Date: 20120315
  Receipt Date: 20120305
  Transmission Date: 20120608
  Serious: Yes (Hospitalization)
  Sender: FDA-Public Use
  Company Number: JP-TEVA-326393ISR

PATIENT
  Age: 42 Year
  Sex: Male

DRUGS (1)
  1. CEFTRIAXONE [Suspect]
     Dosage: 2 GRAM;
     Route: 065

REACTIONS (2)
  - JARISCH-HERXHEIMER REACTION [None]
  - PULMONARY ALVEOLAR HAEMORRHAGE [None]
